FAERS Safety Report 19739041 (Version 1)
Quarter: 2021Q3

REPORT INFORMATION
  Report Type: Spontaneous
  Country: FR (occurrence: FR)
  Receive Date: 20210824
  Receipt Date: 20210824
  Transmission Date: 20211014
  Serious: Yes (Other)
  Sender: FDA-Public Use
  Company Number: NVSC2021FR186432

PATIENT
  Age: 70 Year
  Sex: Male
  Weight: 107 kg

DRUGS (1)
  1. TACROLIMUS. [Suspect]
     Active Substance: TACROLIMUS
     Indication: IMMUNOSUPPRESSANT DRUG THERAPY
     Dosage: 2 MG,QD
     Route: 048
     Dates: start: 20170531

REACTIONS (1)
  - Epstein-Barr virus infection reactivation [Not Recovered/Not Resolved]

NARRATIVE: CASE EVENT DATE: 20210204
